FAERS Safety Report 7900959-1 (Version None)
Quarter: 2011Q4

REPORT INFORMATION
  Report Type: 
  Country: None (occurrence: None)
  Receive Date: 20111108
  Receipt Date: 20111101
  Transmission Date: 20120403
  Serious: Yes (Hospitalization)
  Sender: FDA-Public Use
  Company Number: US-B.I. PHARMACEUTICALS,INC./RIDGEFIELD-2011-BP-25342BP

PATIENT
  Age: 87 Year
  Sex: Female

DRUGS (3)
  1. PRADAXA [Suspect]
     Indication: ATRIAL FIBRILLATION
     Dosage: 300 MG
     Route: 048
     Dates: start: 20110926, end: 20111027
  2. FLECAINIDE ACETATE [Concomitant]
     Dates: start: 20111014
  3. PRADAXA [Suspect]
     Dosage: 150 MG
     Route: 048
     Dates: start: 20111027, end: 20111031

REACTIONS (6)
  - HEAD INJURY [None]
  - RECTAL HAEMORRHAGE [None]
  - BRADYCARDIA [None]
  - FALL [None]
  - HYPOTENSION [None]
  - CONTUSION [None]
